FAERS Safety Report 8882274 (Version 2)
Quarter: 2012Q4

REPORT INFORMATION
  Report Type: 
  Country: NL (occurrence: NL)
  Receive Date: 20121102
  Receipt Date: 20121109
  Transmission Date: 20130627
  Serious: Yes (Other)
  Sender: FDA-Public Use
  Company Number: NL-ROCHE-1151470

PATIENT
  Age: 85 Year
  Sex: Female

DRUGS (2)
  1. ALTEPLASE [Suspect]
     Indication: RETINAL HAEMORRHAGE
     Dosage: daily 0.1 ml of fluid (20 mcg/0.1 mL), once
     Route: 065
  2. SULFUR HEXAFLUORIDE [Suspect]
     Indication: RETINAL HAEMORRHAGE
     Dosage: 15% hexafluoride gas/air mixture
     Route: 065

REACTIONS (1)
  - Retinal detachment [Recovered/Resolved]
